FAERS Safety Report 8356428-0 (Version None)
Quarter: 2012Q2

REPORT INFORMATION
  Report Type: 
  Country: None (occurrence: None)
  Receive Date: 20120514
  Receipt Date: 20120511
  Transmission Date: 20120825
  Serious: Yes (Hospitalization, Other)
  Sender: FDA-Public Use
  Company Number: JP-PFIZER INC-2012115964

PATIENT
  Age: 53 Year
  Sex: Male

DRUGS (2)
  1. DIOVAN [Concomitant]
     Dosage: 80 MG, 1X/DAY
     Route: 048
  2. VARENICLINE TARTRATE [Suspect]
     Dosage: 0.5 MG, 1X/DAY
     Route: 048
     Dates: start: 20120509, end: 20120501

REACTIONS (6)
  - FACE INJURY [None]
  - MOUTH INJURY [None]
  - ATRIOVENTRICULAR BLOCK COMPLETE [None]
  - PRESYNCOPE [None]
  - INCONTINENCE [None]
  - SYNCOPE [None]
